FAERS Safety Report 20922657 (Version 1)
Quarter: 2022Q2

REPORT INFORMATION
  Report Type: Spontaneous
  Country: US (occurrence: US)
  Receive Date: 20220607
  Receipt Date: 20220607
  Transmission Date: 20220721
  Serious: Yes (Other)
  Sender: FDA-Public Use
  Company Number: US-BRISTOL-MYERS SQUIBB COMPANY-2022-044727

PATIENT
  Age: 59 Year
  Sex: Male
  Weight: 87.543 kg

DRUGS (2)
  1. REVLIMID [Suspect]
     Active Substance: LENALIDOMIDE
     Indication: Plasma cell leukaemia
     Dosage: TAKE 1 CAPSULE ONCE A DAY IN THE EVENING AT BEDTIME FOR 21 DAYS THEN REST FOR 7 DAYS
     Route: 048
     Dates: start: 20200818
  2. ELIQUIS [Concomitant]
     Active Substance: APIXABAN
     Indication: Product used for unknown indication
     Route: 065

REACTIONS (2)
  - Ophthalmic vein thrombosis [Unknown]
  - Visual impairment [Unknown]
